FAERS Safety Report 19933606 (Version 1)
Quarter: 2021Q4

REPORT INFORMATION
  Report Type: Spontaneous
  Country: AU (occurrence: AU)
  Receive Date: 20211008
  Receipt Date: 20211008
  Transmission Date: 20220303
  Serious: Yes (Other)
  Sender: FDA-Public Use
  Company Number: 2021A757752

PATIENT
  Age: 49 Year
  Sex: Female

DRUGS (1)
  1. GEFITINIB [Suspect]
     Active Substance: GEFITINIB
     Indication: Non-small cell lung cancer stage IV
     Dosage: UNKNOWN
     Route: 048

REACTIONS (1)
  - Metastases to meninges [Unknown]
